FAERS Safety Report 6298018-X (Version None)
Quarter: 2009Q3

REPORT INFORMATION
  Report Type: 
  Country: None (occurrence: None)
  Receive Date: 20090804
  Receipt Date: 20090804
  Transmission Date: 20100115
  Serious: Yes (Life-Threatening, Hospitalization, Other)
  Sender: FDA-Public Use
  Company Number: None

PATIENT
  Sex: Female
  Weight: 85 kg

DRUGS (1)
  1. MYCOPHENOLATE MOFETIL [Suspect]
     Indication: HEART TRANSPLANT
     Dosage: 1500MG BID ORAL
     Route: 048
     Dates: start: 20090501, end: 20090714

REACTIONS (2)
  - HEART TRANSPLANT REJECTION [None]
  - PRODUCT SUBSTITUTION ISSUE [None]
